FAERS Safety Report 10705677 (Version 1)
Quarter: 2015Q1

REPORT INFORMATION
  Report Type: Spontaneous
  Country: IT (occurrence: IT)
  Receive Date: 20150112
  Receipt Date: 20150112
  Transmission Date: 20150721
  Serious: Yes (Other)
  Sender: FDA-Public Use
  Company Number: PHHY2014IT164684

PATIENT
  Age: 70 Year
  Sex: Female

DRUGS (2)
  1. IMATINIB [Suspect]
     Active Substance: IMATINIB
     Indication: CHRONIC MYELOID LEUKAEMIA
     Route: 065
     Dates: start: 1997
  2. NILOTINIB [Suspect]
     Active Substance: NILOTINIB
     Indication: CHRONIC MYELOID LEUKAEMIA
     Route: 065
     Dates: start: 201002

REACTIONS (7)
  - Bradycardia [Unknown]
  - Electrocardiogram QT prolonged [Recovered/Resolved]
  - Malignant neoplasm progression [Unknown]
  - Drug intolerance [Unknown]
  - Chronic myeloid leukaemia [Unknown]
  - Drug resistance [Unknown]
  - Pancytopenia [Unknown]
